FAERS Safety Report 15937440 (Version 2)
Quarter: 2019Q2

REPORT INFORMATION
  Report Type: Spontaneous
  Country: DK (occurrence: DK)
  Receive Date: 20190208
  Receipt Date: 20190405
  Transmission Date: 20190711
  Serious: Yes (Other)
  Sender: FDA-Public Use
  Company Number: DK-NOVOPROD-645516

PATIENT
  Age: 19 Year
  Sex: Female
  Weight: 78.8 kg

DRUGS (1)
  1. NOVORAPID [Suspect]
     Active Substance: INSULIN ASPART
     Indication: TYPE 1 DIABETES MELLITUS
     Dosage: 23-24IU QD
     Route: 058

REACTIONS (4)
  - Blood ketone body present [Unknown]
  - Nephropathy toxic [Unknown]
  - Blood glucose increased [Recovered/Resolved]
  - Product physical issue [Unknown]

NARRATIVE: CASE EVENT DATE: 20190102
